FAERS Safety Report 8998566 (Version 1)
Quarter: 2013Q1

REPORT INFORMATION
  Report Type: Spontaneous
  Country: US (occurrence: US)
  Receive Date: 20130102
  Receipt Date: 20130102
  Transmission Date: 20140127
  Serious: Yes (Hospitalization)
  Sender: FDA-Public Use
  Company Number: US-AMGEN-USASP2012084065

PATIENT
  Age: 57 Year
  Sex: Female

DRUGS (3)
  1. ENBREL [Suspect]
     Indication: RHEUMATOID ARTHRITIS
     Dosage: 50 MG, QWK
     Dates: start: 20030601
  2. METHOTREXATE [Concomitant]
     Dosage: 0.5ML QWK DURATION: 9-10 YEARS
     Route: 058
  3. CELEBREX [Concomitant]
     Dosage: 400 MG, QD, DURATION: 12-13 YEARS

REACTIONS (2)
  - Osteoarthritis [Recovered/Resolved]
  - Injection site pain [Recovered/Resolved]
